FAERS Safety Report 6255637-4 (Version None)
Quarter: 2009Q3

REPORT INFORMATION
  Report Type: 
  Country: None (occurrence: None)
  Receive Date: 20090701
  Receipt Date: 20090619
  Transmission Date: 20100115
  Serious: Yes (Death)
  Sender: FDA-Public Use
  Company Number: 2009S1000035

PATIENT
  Age: 30 Year
  Sex: Male
  Weight: 88.905 kg

DRUGS (2)
  1. INOMAX [Suspect]
     Indication: ACUTE RESPIRATORY DISTRESS SYNDROME
     Dosage: 80 PPM; CONT; INH
     Route: 055
     Dates: start: 20090618, end: 20090624
  2. INOMAX [Suspect]
     Indication: OXYGEN SATURATION ABNORMAL
     Dosage: 80 PPM; CONT; INH
     Route: 055
     Dates: start: 20090618, end: 20090624

REACTIONS (2)
  - CARDIAC ARREST [None]
  - PULMONARY EMBOLISM [None]
